FAERS Safety Report 8531843-0 (Version None)
Quarter: 2012Q3

REPORT INFORMATION
  Report Type: 
  Country: None (occurrence: None)
  Receive Date: 20120723
  Receipt Date: 20120718
  Transmission Date: 20120928
  Serious: No
  Sender: FDA-Public Use
  Company Number: US-TEVA-349376USA

PATIENT
  Sex: Female
  Weight: 71.732 kg

DRUGS (3)
  1. CLONAZEPAM [Concomitant]
     Indication: MUSCLE RELAXANT THERAPY
     Dosage: 1 MILLIGRAM;
     Route: 048
  2. LORAZEPAM [Concomitant]
     Indication: INSOMNIA
     Dosage: PRN
     Route: 048
  3. COPAXONE [Suspect]
     Indication: MULTIPLE SCLEROSIS
     Dosage: 20 MILLIGRAM;
     Route: 058
     Dates: start: 20070101, end: 20120701

REACTIONS (2)
  - INJECTION SITE PAIN [None]
  - INJECTION SITE HAEMATOMA [None]
